FAERS Safety Report 5556147-X (Version None)
Quarter: 2007Q4

REPORT INFORMATION
  Report Type: 
  Country: None (occurrence: None)
  Receive Date: 20071130
  Receipt Date: 20070630
  Transmission Date: 20080405
  Serious: No
  Sender: FDA-Public Use
  Company Number: 2005PV005613

PATIENT
  Age: 59 Year
  Sex: Male
  Weight: 117.5 kg

DRUGS (13)
  1. EXENATIDE(EXENATIDE) PEN,DISPOSABLE [Suspect]
     Indication: TYPE 2 DIABETES MELLITUS
     Dosage: 5 UG, 2/D, SUBCUTANEOUS ; 5 UG 2/D, SUBCUTANEOUS
     Route: 058
     Dates: start: 20050501, end: 20050901
  2. EXENATIDE(EXENATIDE) PEN,DISPOSABLE [Suspect]
     Indication: TYPE 2 DIABETES MELLITUS
     Dosage: 5 UG, 2/D, SUBCUTANEOUS ; 5 UG 2/D, SUBCUTANEOUS
     Route: 058
     Dates: start: 20051114
  3. EXENATIDE(EXENATIDE) PEN,DISPOSABLE [Suspect]
     Dosage: 10 UG, 2/D, SUBCUTANEOUS
     Route: 058
     Dates: start: 20050901
  4. GLUCOPHAGE [Concomitant]
  5. GLUCOTROL [Concomitant]
  6. ASA (ASPIRIN (ACETYLSALICYLIC ACID) UNKNOWN FORMULATION) [Concomitant]
  7. METFORMIN HCL [Concomitant]
  8. AMARYL [Concomitant]
  9. LOTREL [Concomitant]
  10. AVALIDE [Concomitant]
  11. NIASPAN [Concomitant]
  12. DOXAZOSIN MESYLATE [Concomitant]
  13. CELEBREX [Concomitant]

REACTIONS (8)
  - ABDOMINAL DISTENSION [None]
  - BLOOD GLUCOSE DECREASED [None]
  - DECREASED APPETITE [None]
  - INJECTION SITE PAIN [None]
  - NAUSEA [None]
  - NERVOUSNESS [None]
  - STRESS [None]
  - WEIGHT DECREASED [None]
